FAERS Safety Report 19508888 (Version 1)
Quarter: 2021Q3

REPORT INFORMATION
  Report Type: Spontaneous
  Country: DE (occurrence: DE)
  Receive Date: 20210708
  Receipt Date: 20210708
  Transmission Date: 20211014
  Serious: Yes (Hospitalization, Disabling, Other)
  Sender: FDA-Public Use
  Company Number: DE-MYLANLABS-2021M1039031

PATIENT
  Age: 67 Year
  Sex: Male
  Weight: 97 kg

DRUGS (5)
  1. MAGNESIUM [Concomitant]
     Active Substance: MAGNESIUM
     Dosage: 300: ONE TABLET DAILY
     Route: 048
     Dates: start: 200601
  2. CANDESARTAN. [Suspect]
     Active Substance: CANDESARTAN
     Indication: PRODUCT USED FOR UNKNOWN INDICATION
     Dosage: 8 MILLIGRAM, BID
     Route: 048
     Dates: start: 20180706
  3. BYETTA [Concomitant]
     Active Substance: EXENATIDE
     Dosage: 10 MICROGRAM, BID
     Dates: start: 201101
  4. METFORMIN [Concomitant]
     Active Substance: METFORMIN HYDROCHLORIDE
     Dosage: 1000: TWO TABLETS DAILY
     Route: 048
     Dates: start: 201101
  5. ACETYLSALICYLIC ACID [Concomitant]
     Active Substance: ASPIRIN
     Dosage: 100: ONE TABLET DAILY
     Route: 048
     Dates: start: 199101

REACTIONS (5)
  - Arterial occlusive disease [Unknown]
  - Pollakiuria [Not Recovered/Not Resolved]
  - Cough [Not Recovered/Not Resolved]
  - Nasopharyngitis [Not Recovered/Not Resolved]
  - Dizziness [Not Recovered/Not Resolved]

NARRATIVE: CASE EVENT DATE: 201901
